FAERS Safety Report 6613646-7 (Version None)
Quarter: 2010Q1

REPORT INFORMATION
  Report Type: 
  Country: None (occurrence: None)
  Receive Date: 20100226
  Receipt Date: 20100212
  Transmission Date: 20100710
  Serious: Yes (Death)
  Sender: FDA-Public Use
  Company Number: B0634777A

PATIENT
  Age: 47 Year
  Sex: Female

DRUGS (7)
  1. PROPAFENONE HYDROCHLORIDE [Suspect]
     Indication: DRUG USE FOR UNKNOWN INDICATION
     Dosage: ORAL
     Route: 048
  2. BETA-BLOCKER (FORMULATION UNKNOWN) (BETA-BLOCKER) [Suspect]
     Dosage: ORAL
     Route: 048
  3. ALPRAZOLAM [Suspect]
     Dosage: ORAL
  4. FLUOXETINE [Suspect]
     Dosage: ORAL
  5. ETHANOL (FORMULATION UNKNOWN) (ALCOHOL) [Suspect]
     Dosage: ORAL
     Route: 048
  6. CARDIAC GLYCOSIDE (FORMULATION UNKNOWN) (CARDIAC GLYCOSIDE) [Suspect]
     Dosage: ORAL
     Route: 048
  7. CLONAZEPAM [Suspect]
     Dosage: ORAL
     Route: 048

REACTIONS (1)
  - COMPLETED SUICIDE [None]
